FAERS Safety Report 16482515 (Version 2)
Quarter: 2019Q3

REPORT INFORMATION
  Report Type: Report from Study
  Country: KR (occurrence: KR)
  Receive Date: 20190627
  Receipt Date: 20190703
  Transmission Date: 20191004
  Serious: Yes (Hospitalization)
  Sender: FDA-Public Use
  Company Number: KR-ROCHE-2343755

PATIENT
  Age: 61 Year
  Sex: Female
  Weight: 62.3 kg

DRUGS (9)
  1. PACLITAXEL. [Suspect]
     Active Substance: PACLITAXEL
     Indication: OVARIAN CANCER
     Dosage: MOST RECENT DOSE ON 10/MAY/2019, 278 MG.
     Route: 042
     Dates: start: 20190118
  2. LOSARTAN PLUS [Concomitant]
     Indication: HYPERTENSION
     Route: 065
     Dates: start: 20190315
  3. BLINDED ATEZOLIZUMAB [Suspect]
     Active Substance: ATEZOLIZUMAB
     Indication: OVARIAN CANCER
     Dosage: MOST RECENT DOSE ON 17/JUN/2019
     Route: 042
     Dates: start: 20190118
  4. CARBOPLATIN. [Suspect]
     Active Substance: CARBOPLATIN
     Indication: OVARIAN CANCER
     Dosage: 6 MILLIGRAMS PER MILLILITER*MINUTE (MG/ML*MIN)?MOST RECENT DOSE ON 10/MAY/2019, 614 MG
     Route: 042
     Dates: start: 20190118
  5. CHLORPHENIRAMINE [CHLORPHENAMINE] [Concomitant]
     Active Substance: CHLORPHENIRAMINE
     Indication: PROPHYLAXIS
     Route: 065
     Dates: start: 20190207, end: 2019
  6. BEVACIZUMAB. [Suspect]
     Active Substance: BEVACIZUMAB
     Indication: OVARIAN CANCER
     Dosage: MOST RECENT DOSE ON 17/JUN/2019, 870 MG
     Route: 042
     Dates: start: 20190208
  7. ATORVASTATIN [Concomitant]
     Active Substance: ATORVASTATIN
     Indication: HYPERCHOLESTEROLAEMIA
     Route: 065
     Dates: start: 2011
  8. BENZYDAMINE [Concomitant]
     Active Substance: BENZYDAMINE
     Indication: ORAL PAIN
     Route: 065
     Dates: start: 20190118, end: 201905
  9. GABAPENTIN. [Concomitant]
     Active Substance: GABAPENTIN
     Indication: PERIPHERAL SENSORY NEUROPATHY
     Route: 065
     Dates: start: 20190321

REACTIONS (1)
  - Ileus [Recovered/Resolved]

NARRATIVE: CASE EVENT DATE: 20190621
